FAERS Safety Report 10712839 (Version 1)
Quarter: 2015Q1

REPORT INFORMATION
  Report Type: Spontaneous
  Country: US (occurrence: None)
  Receive Date: 20150114
  Receipt Date: 20150114
  Transmission Date: 20150721
  Serious: Yes (Death)
  Sender: FDA-Public Use
  Company Number: None

PATIENT
  Age: 16 Year
  Sex: Female
  Weight: 58.97 kg

DRUGS (1)
  1. BENZONATATE 200MG [Suspect]
     Active Substance: BENZONATATE
     Indication: COUGH
     Dosage: 1 PILL
     Route: 048

REACTIONS (2)
  - Intentional product misuse [None]
  - Overdose [None]

NARRATIVE: CASE EVENT DATE: 20130119
